FAERS Safety Report 17027134 (Version 3)
Quarter: 2019Q4

REPORT INFORMATION
  Report Type: Spontaneous
  Country: CN (occurrence: CN)
  Receive Date: 20191113
  Receipt Date: 20191204
  Transmission Date: 20200122
  Serious: Yes (Other)
  Sender: FDA-Public Use
  Company Number: CN-GLAXOSMITHKLINE-CN2019APC204129

PATIENT

DRUGS (6)
  1. SULPIRIDE TABLETS [Suspect]
     Active Substance: SULPIRIDE
     Indication: BIPOLAR DISORDER
     Dosage: 50 MG, QD
     Route: 048
     Dates: start: 20190705, end: 20190807
  2. OULANNING (OLANZAPINE) [Suspect]
     Active Substance: OLANZAPINE
     Indication: BIPOLAR DISORDER
     Dosage: 7.5 MG, BID
     Route: 048
     Dates: start: 20190524, end: 20190625
  3. SULPIRIDE TABLETS [Suspect]
     Active Substance: SULPIRIDE
     Indication: DEPRESSION
  4. LAMICTAL [Suspect]
     Active Substance: LAMOTRIGINE
     Indication: DEPRESSION
  5. OULANNING (OLANZAPINE) [Suspect]
     Active Substance: OLANZAPINE
     Indication: DEPRESSION
  6. LAMICTAL [Suspect]
     Active Substance: LAMOTRIGINE
     Indication: BIPOLAR DISORDER
     Dosage: 50 MG, BID
     Route: 048
     Dates: start: 20190625, end: 20191108

REACTIONS (7)
  - Tremor [Recovering/Resolving]
  - Constipation [Recovering/Resolving]
  - Dyschezia [Recovering/Resolving]
  - Dystonia [Recovering/Resolving]
  - Anxiety [Recovering/Resolving]
  - Muscle disorder [Recovering/Resolving]
  - Liver disorder [Recovering/Resolving]

NARRATIVE: CASE EVENT DATE: 20190625
